FAERS Safety Report 25004816 (Version 2)
Quarter: 2025Q1

REPORT INFORMATION
  Report Type: Spontaneous
  Country: JP (occurrence: JP)
  Receive Date: 20250224
  Receipt Date: 20250312
  Transmission Date: 20250408
  Serious: Yes (Death, Hospitalization, Other)
  Sender: PFIZER
  Company Number: JP-PFIZER INC-PV202500013547

PATIENT
  Age: 8 Decade
  Sex: Male

DRUGS (4)
  1. ELREXFIO [Suspect]
     Active Substance: ELRANATAMAB-BCMM
     Indication: Plasma cell myeloma
     Route: 058
     Dates: start: 20241119, end: 20241119
  2. ELREXFIO [Suspect]
     Active Substance: ELRANATAMAB-BCMM
     Route: 058
     Dates: start: 20241122, end: 20241122
  3. ELREXFIO [Suspect]
     Active Substance: ELRANATAMAB-BCMM
     Dosage: 76 MG, EVERY TUESDAY
     Route: 058
     Dates: start: 20241126, end: 20241217
  4. ELREXFIO [Suspect]
     Active Substance: ELRANATAMAB-BCMM
     Route: 058
     Dates: start: 20241227, end: 20241227

REACTIONS (5)
  - Respiratory failure [Fatal]
  - Pneumonia viral [Fatal]
  - Lymphocyte count decreased [Fatal]
  - Cytomegalovirus infection [Unknown]
  - Influenza [Unknown]

NARRATIVE: CASE EVENT DATE: 20241221
